FAERS Safety Report 9971377 (Version 5)
Quarter: 2014Q2

REPORT INFORMATION
  Report Type: Spontaneous
  Country: US (occurrence: US)
  Receive Date: 20140306
  Receipt Date: 20140627
  Transmission Date: 20141212
  Serious: Yes (Hospitalization)
  Sender: FDA-Public Use
  Company Number: US-BAYER-2014-033254

PATIENT
  Age: 37 Year
  Sex: Female
  Weight: 54.42 kg

DRUGS (4)
  1. MIRENA [Suspect]
     Indication: CONTRACEPTION
     Dosage: 20 MCG/24HR, CONT
     Route: 015
     Dates: start: 20060411, end: 20130820
  2. LEXAPRO [Concomitant]
     Indication: MAJOR DEPRESSION
     Dosage: UNK
     Dates: start: 2011
  3. WELLBUTRIN [Concomitant]
     Indication: MAJOR DEPRESSION
     Dosage: UNK
     Dates: start: 2011
  4. DEPO PROVERA [Concomitant]

REACTIONS (12)
  - Uterine perforation [None]
  - Device misuse [None]
  - Muscle spasms [None]
  - Constipation [None]
  - Injury [None]
  - Pain [None]
  - Emotional disorder [None]
  - Device dislocation [None]
  - Depression [None]
  - Anxiety [None]
  - Device use error [None]
  - Device issue [None]
